FAERS Safety Report 5902762-0 (Version None)
Quarter: 2008Q3

REPORT INFORMATION
  Report Type: 
  Country: None (occurrence: None)
  Receive Date: 20080930
  Receipt Date: 20080923
  Transmission Date: 20090109
  Serious: Yes (Other)
  Sender: FDA-Public Use
  Company Number: CO-BAYER-200818476LA

PATIENT

DRUGS (2)
  1. BETAFERON [Suspect]
     Indication: SECONDARY PROGRESSIVE MULTIPLE SCLEROSIS
     Route: 058
     Dates: start: 20060101, end: 20080101
  2. BETAFERON [Suspect]
     Route: 058
     Dates: start: 20080101

REACTIONS (2)
  - PROTEINURIA [None]
  - RENAL FAILURE [None]
